FAERS Safety Report 24352233 (Version 1)
Quarter: 2024Q3

REPORT INFORMATION
  Report Type: Report from Study
  Country: ES (occurrence: ES)
  Receive Date: 20240923
  Receipt Date: 20240923
  Transmission Date: 20241016
  Serious: No
  Sender: ROCHE
  Company Number: ES-ROCHE-3360975

PATIENT
  Sex: Female

DRUGS (3)
  1. TRASTUZUMAB [Suspect]
     Active Substance: TRASTUZUMAB
     Indication: Breast cancer
     Route: 065
     Dates: start: 20171212, end: 20180911
  2. TRASTUZUMAB [Suspect]
     Active Substance: TRASTUZUMAB
     Dosage: D1-Q3S
     Route: 065
     Dates: start: 20211105
  3. TRASTUZUMAB [Suspect]
     Active Substance: TRASTUZUMAB
     Dosage: LAST DOSE ON 30/MAR/2022, Q1-Q3S
     Route: 065
     Dates: start: 20220217

REACTIONS (1)
  - Toxicity to various agents [Unknown]
